FAERS Safety Report 4439029-6 (Version None)
Quarter: 2004Q3

REPORT INFORMATION
  Report Type: 
  Country: None (occurrence: None)
  Receive Date: 20040830
  Receipt Date: 20040820
  Transmission Date: 20050211
  Serious: Yes (Death, Hospitalization, Other)
  Sender: FDA-Public Use
  Company Number: 2004-07-0073

PATIENT
  Age: 58 Year
  Sex: Male
  Weight: 56 kg

DRUGS (10)
  1. INTRON A [Suspect]
     Indication: RENAL CELL CARCINOMA STAGE UNSPECIFIED
     Dosage: 6 MIU QD INTRAMUSCULAR
     Route: 030
     Dates: start: 20040626, end: 20040627
  2. DECADRON [Suspect]
     Indication: METASTASES TO SPINE
     Dosage: 8 MG ORAL
     Route: 048
     Dates: start: 20040601, end: 20040628
  3. VOLTAREN [Suspect]
     Indication: PAIN
     Dosage: 100-75 MG ORAL
     Route: 048
     Dates: start: 20040525, end: 20040615
  4. RADIATION THERAPY [Suspect]
     Indication: METASTASES TO BONE
     Dosage: X-RAY THERAPY
     Dates: start: 20040606, end: 20040625
  5. FLURBIPROFEN INJECTABLE [Suspect]
     Indication: PYREXIA
     Dosage: 50 MG INTRAVENOUS
     Route: 042
     Dates: start: 20040627, end: 20040628
  6. MORPHINE HYDROCHLORIDE [Concomitant]
  7. PARIET (RABEPRAZOLE SODIUM) [Concomitant]
  8. ZOLPIDEM TARTRATE [Concomitant]
  9. MARZULENE [Concomitant]
  10. NAUZELIN [Concomitant]

REACTIONS (7)
  - ENTEROCOLITIS HAEMORRHAGIC [None]
  - INTESTINAL PERFORATION [None]
  - METASTASES TO SPINE [None]
  - PERITONITIS [None]
  - RENAL CELL CARCINOMA STAGE UNSPECIFIED [None]
  - SHOCK [None]
  - SPINAL CORD COMPRESSION [None]
